FAERS Safety Report 22045256 (Version 1)
Quarter: 2023Q1

REPORT INFORMATION
  Report Type: Spontaneous
  Country: GB (occurrence: GB)
  Receive Date: 20230228
  Receipt Date: 20230228
  Transmission Date: 20230417
  Serious: Yes (Other)
  Sender: FDA-Public Use
  Company Number: GB-Osmotica_Pharmaceutical_US_LLC-POI0573202300055

PATIENT
  Age: 51 Year
  Sex: Female
  Weight: 78 kg

DRUGS (2)
  1. DIVIGEL [Suspect]
     Active Substance: ESTRADIOL
     Indication: Menopause
     Route: 065
  2. UTROGESTAN [Suspect]
     Active Substance: PROGESTERONE
     Indication: Menopause
     Route: 065

REACTIONS (4)
  - Groin pain [Not Recovered/Not Resolved]
  - Lymphadenopathy [Not Recovered/Not Resolved]
  - Breast swelling [Not Recovered/Not Resolved]
  - Skin swelling [Not Recovered/Not Resolved]

NARRATIVE: CASE EVENT DATE: 20221116
